FAERS Safety Report 17755847 (Version 1)
Quarter: 2020Q2

REPORT INFORMATION
  Report Type: Spontaneous
  Country: US (occurrence: US)
  Receive Date: 20200506
  Receipt Date: 20200506
  Transmission Date: 20200714
  Serious: Yes (Death)
  Sender: FDA-Public Use
  Company Number: None

PATIENT
  Age: 51 Year
  Sex: Male
  Weight: 102.7 kg

DRUGS (1)
  1. ALTEPLASE. [Suspect]
     Active Substance: ALTEPLASE
     Indication: ISCHAEMIC STROKE
     Dosage: ?          OTHER FREQUENCY:ONCE;?
     Route: 042

REACTIONS (4)
  - Intraventricular haemorrhage [None]
  - Brain midline shift [None]
  - Cerebral infarction [None]
  - Brain herniation [None]

NARRATIVE: CASE EVENT DATE: 20200426
